FAERS Safety Report 17679249 (Version 2)
Quarter: 2020Q2

REPORT INFORMATION
  Report Type: Report from Study
  Country: IT (occurrence: IT)
  Receive Date: 20200417
  Receipt Date: 20200507
  Transmission Date: 20200714
  Serious: Yes (Life-Threatening)
  Sender: FDA-Public Use
  Company Number: IT-TEVA-2020-IT-1224377

PATIENT
  Age: 48 Year
  Sex: Male

DRUGS (7)
  1. PAROXETINE. [Suspect]
     Active Substance: PAROXETINE
     Indication: DRUG ABUSE
     Dosage: 560 MG
     Route: 048
     Dates: start: 20200321, end: 20200321
  2. OLANZAPINE. [Suspect]
     Active Substance: OLANZAPINE
     Indication: DRUG ABUSE
     Dosage: 140 MG
     Route: 048
     Dates: start: 20200321, end: 20200321
  3. OLANZAPINE. [Concomitant]
     Active Substance: OLANZAPINE
     Indication: BIPOLAR DISORDER
     Dosage: 5 MG
     Route: 048
  4. OLMESARTAN MEDOXOMIL/HIDROCLOROTIAZIDE [Suspect]
     Active Substance: HYDROCHLOROTHIAZIDE\OLMESARTAN MEDOXOMIL
     Indication: DRUG ABUSE
     Dosage: 28 DOSAGE FORMS
     Route: 048
     Dates: start: 20200321, end: 20200321
  5. PAROXETINE. [Concomitant]
     Active Substance: PAROXETINE
     Indication: BIPOLAR DISORDER
     Dosage: 20 MG
     Route: 048
  6. VENLAFAXINE HYDROCHLORIDE. [Suspect]
     Active Substance: VENLAFAXINE HYDROCHLORIDE
     Indication: DRUG ABUSE
     Dosage: 1 GRAM
     Route: 048
     Dates: start: 20200321, end: 20200321
  7. DOXAZOSIN [Suspect]
     Active Substance: DOXAZOSIN MESYLATE
     Indication: DRUG ABUSE
     Dosage: 60 MG
     Route: 048
     Dates: start: 20200321, end: 20200321

REACTIONS (4)
  - Sopor [Recovering/Resolving]
  - Bundle branch block [Recovering/Resolving]
  - Drug abuse [Recovering/Resolving]
  - Intentional self-injury [Recovering/Resolving]

NARRATIVE: CASE EVENT DATE: 20200321
